FAERS Safety Report 7345487 (Version 4)
Quarter: 2015Q1

REPORT INFORMATION
  Report Type: Spontaneous
  Country: BR (occurrence: None)
  Receive Date: 20100318
  Receipt Date: 20150121
  Transmission Date: 20150721
  Serious: Yes (Hospitalization, Other)
  Sender: FDA-Public Use
  Company Number: 2010000780

PATIENT
  Age: 75 Year
  Sex: Female

DRUGS (5)
  1. CIPROFLOXACIN. [Concomitant]
     Active Substance: CIPROFLOXACIN
  2. ERLOTINIB HCL [Suspect]
     Active Substance: ERLOTINIB HYDROCHLORIDE
     Indication: PANCREATIC CARCINOMA
     Dosage: ORAL
     Route: 048
     Dates: start: 20091016, end: 20091020
  3. MORPHINE [Concomitant]
     Active Substance: MORPHINE
  4. CAPTOPRIL. [Concomitant]
     Active Substance: CAPTOPRIL
  5. VITAMIN B COMPLEX NOS [Concomitant]
     Active Substance: CYANOCOBALAMIN\PYRIDOXINE HYDROCHLORIDE\RIBOFLAVIN\SODIUM PANTOTHENATE\THIAMINE HYDROCHLORIDE\VITAMIN B COMPLEX

REACTIONS (13)
  - Diarrhoea [None]
  - General physical health deterioration [None]
  - Blood creatinine decreased [None]
  - Blood urea increased [None]
  - Drug intolerance [None]
  - Dehydration [None]
  - Procedural pain [None]
  - Cachexia [None]
  - Blood sodium decreased [None]
  - Blood calcium decreased [None]
  - Asthenia [None]
  - Malnutrition [None]
  - Mucosal inflammation [None]

NARRATIVE: CASE EVENT DATE: 20091020
